FAERS Safety Report 8816545 (Version 1)
Quarter: 2012Q4

REPORT INFORMATION
  Report Type: Spontaneous
  Country: US (occurrence: None)
  Receive Date: 20121001
  Receipt Date: 20121001
  Transmission Date: 20130627
  Serious: Yes (Hospitalization)
  Sender: FDA-Public Use
  Company Number: None

PATIENT
  Age: 59 Year
  Sex: Female
  Weight: 99 kg

DRUGS (4)
  1. GAMMAGARD LIQUID [Suspect]
     Route: 042
     Dates: start: 20120916
  2. GAMMAGARD LIQUID [Suspect]
     Dates: start: 20120917
  3. GAMMAGARD LIQUID [Suspect]
     Dates: start: 20120918
  4. GAMMAGARD LIQUID [Suspect]
     Dosage: RECEIVED -15% OF DOSE
     Dates: start: 20120919

REACTIONS (2)
  - Headache [None]
  - Meningitis aseptic [None]
